FAERS Safety Report 10159748 (Version 1)
Quarter: 2014Q2

REPORT INFORMATION
  Report Type: Spontaneous
  Country: US (occurrence: US)
  Receive Date: 20140508
  Receipt Date: 20140508
  Transmission Date: 20141212
  Serious: Yes (Hospitalization)
  Sender: FDA-Public Use
  Company Number: US-GLAXOSMITHKLINE-A1024797A

PATIENT
  Age: 56 Year
  Sex: Female
  Weight: 45.5 kg

DRUGS (8)
  1. TYKERB [Suspect]
     Indication: PRODUCT USED FOR UNKNOWN INDICATION
     Dosage: 1250MG PER DAY
     Route: 048
  2. THYROID [Concomitant]
  3. NEXIUM [Concomitant]
  4. METOPROLOL [Concomitant]
  5. LOSARTAN POTASSIUM [Concomitant]
  6. BENZONATATE [Concomitant]
  7. LEVETIRACETAM [Concomitant]
  8. XELODA [Concomitant]

REACTIONS (1)
  - Diarrhoea [Unknown]
